FAERS Safety Report 11995863 (Version 3)
Quarter: 2016Q3

REPORT INFORMATION
  Report Type: Spontaneous
  Country: JP (occurrence: JP)
  Receive Date: 20160203
  Receipt Date: 20160719
  Transmission Date: 20161109
  Serious: Yes (Hospitalization)
  Sender: FDA-Public Use
  Company Number: JP-SA-2016SA018192

PATIENT
  Age: 55 Year
  Sex: Female

DRUGS (5)
  1. CISPLATIN. [Suspect]
     Active Substance: CISPLATIN
     Indication: SKIN CANCER METASTATIC
     Route: 065
     Dates: start: 201406
  2. CETUXIMAB [Concomitant]
     Active Substance: CETUXIMAB
     Indication: CHEMOTHERAPY
     Dates: end: 201405
  3. DOCETAXEL. [Suspect]
     Active Substance: DOCETAXEL
     Indication: SKIN CANCER METASTATIC
     Route: 065
     Dates: start: 201406
  4. PACLITAXEL. [Concomitant]
     Active Substance: PACLITAXEL
     Indication: CHEMOTHERAPY
     Dates: end: 201405
  5. FLUOROURACIL. [Suspect]
     Active Substance: FLUOROURACIL
     Indication: SKIN CANCER METASTATIC
     Route: 065
     Dates: start: 201406

REACTIONS (18)
  - Gastrointestinal mucosal disorder [Recovering/Resolving]
  - Vomiting [Recovering/Resolving]
  - Constipation [Recovering/Resolving]
  - Abdominal pain lower [Recovering/Resolving]
  - Malaise [Recovering/Resolving]
  - Nausea [Recovering/Resolving]
  - Diarrhoea [Recovering/Resolving]
  - Dehydration [Recovering/Resolving]
  - Abdominal distension [Recovering/Resolving]
  - Superior mesenteric artery syndrome [Recovering/Resolving]
  - Gastroptosis [Recovering/Resolving]
  - Decreased appetite [Recovering/Resolving]
  - Gastric dilatation [Recovering/Resolving]
  - Abdominal tenderness [Recovering/Resolving]
  - Cholangitis [Recovering/Resolving]
  - Duodenal stenosis [Recovering/Resolving]
  - Malabsorption [Recovering/Resolving]
  - Neutropenia [Recovering/Resolving]

NARRATIVE: CASE EVENT DATE: 2014
